FAERS Safety Report 7365014-0 (Version None)
Quarter: 2011Q1

REPORT INFORMATION
  Report Type: 
  Country: None (occurrence: None)
  Receive Date: 20110321
  Receipt Date: 20110311
  Transmission Date: 20110831
  Serious: Yes (Hospitalization)
  Sender: FDA-Public Use
  Company Number: US-ASTRAZENECA-2011SE13745

PATIENT
  Age: 59 Year
  Sex: Female

DRUGS (5)
  1. SEROQUEL [Suspect]
     Indication: DEPRESSION
     Route: 048
     Dates: start: 20100901
  2. LEXAPRO [Concomitant]
  3. MAXZIDE [Concomitant]
  4. ZANAFLEX [Concomitant]
  5. PROVIGIL [Concomitant]

REACTIONS (1)
  - BREAST CANCER [None]
